FAERS Safety Report 5971577-X (Version None)
Quarter: 2008Q4

REPORT INFORMATION
  Report Type: 
  Country: None (occurrence: None)
  Receive Date: 20081201
  Receipt Date: 20081125
  Transmission Date: 20090506
  Serious: Yes (Other)
  Sender: FDA-Public Use
  Company Number: CH-JNJFOC-20081103731

PATIENT
  Sex: Male
  Weight: 73 kg

DRUGS (4)
  1. DURAGESIC-100 [Suspect]
     Indication: MUSCULOSKELETAL PAIN
     Route: 062
  2. ELTROXIN [Concomitant]
     Indication: HYPOTHYROIDISM
     Route: 048
  3. CITALOPRAM HYDROBROMIDE [Concomitant]
     Indication: DEPRESSION
     Dosage: 1-0-0
     Route: 065
  4. AMITRIPTYLINE HCL [Concomitant]
     Indication: SLEEP DISORDER
     Route: 065

REACTIONS (3)
  - HYPERSOMNIA [None]
  - INAPPROPRIATE SCHEDULE OF DRUG ADMINISTRATION [None]
  - WITHDRAWAL SYNDROME [None]
